FAERS Safety Report 24085869 (Version 1)
Quarter: 2024Q3

REPORT INFORMATION
  Report Type: Spontaneous
  Country: US (occurrence: US)
  Receive Date: 20240712
  Receipt Date: 20240712
  Transmission Date: 20241016
  Serious: No
  Sender: JOHNSON AND JOHNSON
  Company Number: US-JNJFOC-20240720906

PATIENT
  Age: 46 Year
  Sex: Female

DRUGS (2)
  1. SPRAVATO [Suspect]
     Active Substance: ESKETAMINE
     Indication: Depression
     Dosage: DOSE WAS UNSURE IF SHE TOOK THE 56MG OR 84MG.
  2. SPRAVATO [Suspect]
     Active Substance: ESKETAMINE
     Indication: Suicidal ideation

REACTIONS (1)
  - Depression [Unknown]

NARRATIVE: CASE EVENT DATE: 20240101
